FAERS Safety Report 24842664 (Version 1)
Quarter: 2025Q1

REPORT INFORMATION
  Report Type: Report from Study
  Country: CA (occurrence: CA)
  Receive Date: 20250115
  Receipt Date: 20250115
  Transmission Date: 20250408
  Serious: Yes (Hospitalization)
  Sender: ABBVIE
  Company Number: CA-ABBVIE-6084345

PATIENT
  Sex: Male

DRUGS (1)
  1. SKYRIZI [Suspect]
     Active Substance: RISANKIZUMAB-RZAA
     Indication: Crohn^s disease
     Route: 058
     Dates: start: 20231107

REACTIONS (4)
  - Stoma obstruction [Recovered/Resolved]
  - Ileostomy [Recovered/Resolved]
  - Food poisoning [Recovered/Resolved]
  - Stoma complication [Recovered/Resolved]
